FAERS Safety Report 8052764-6 (Version None)
Quarter: 2012Q1

REPORT INFORMATION
  Report Type: 
  Country: None (occurrence: None)
  Receive Date: 20120118
  Receipt Date: 20120110
  Transmission Date: 20120608
  Serious: Yes (Hospitalization, Other)
  Sender: FDA-Public Use
  Company Number: PHEH2006US11365

PATIENT
  Sex: Male

DRUGS (12)
  1. ARTANE [Suspect]
  2. COGENTIN [Concomitant]
  3. CLOZARIL [Interacting]
     Dosage: 275 MG, QD
     Route: 048
     Dates: start: 20061101
  4. CLOZARIL [Interacting]
     Dosage: 250 MG/D
     Route: 048
  5. CLOZARIL [Interacting]
     Dosage: 100 MG, BID
  6. RISPERDAL [Interacting]
     Dates: start: 20060101
  7. CLOZARIL [Interacting]
     Indication: SCHIZOPHRENIA
     Dates: start: 19900101, end: 20060101
  8. CLOZARIL [Interacting]
     Dosage: 150-200 MG /D
     Route: 048
  9. DEPAKOTE [Concomitant]
     Dosage: 750 MG, BID
  10. AURANTIIN [Concomitant]
  11. HALDOL [Suspect]
  12. CLOZARIL [Interacting]
     Dosage: 375-400 MG QD

REACTIONS (22)
  - FALL [None]
  - DYSSTASIA [None]
  - SPEECH DISORDER [None]
  - PARKINSONIAN GAIT [None]
  - CONVULSION [None]
  - POLLAKIURIA [None]
  - SOMNOLENCE [None]
  - FATIGUE [None]
  - NAUSEA [None]
  - PSYCHOTIC DISORDER [None]
  - ABASIA [None]
  - CONSTIPATION [None]
  - AGGRESSION [None]
  - DROOLING [None]
  - GAIT DISTURBANCE [None]
  - ABNORMAL BEHAVIOUR [None]
  - PRURITUS GENERALISED [None]
  - OBSESSIVE-COMPULSIVE DISORDER [None]
  - VERTIGO [None]
  - DEPRESSION [None]
  - HEADACHE [None]
  - ASTHENIA [None]
